FAERS Safety Report 5975618-5 (Version None)
Quarter: 2008Q4

REPORT INFORMATION
  Report Type: 
  Country: None (occurrence: None)
  Receive Date: 20081128
  Receipt Date: 20081112
  Transmission Date: 20090506
  Serious: Yes (Hospitalization)
  Sender: FDA-Public Use
  Company Number: 8039757

PATIENT
  Age: 40 Year
  Sex: Female

DRUGS (5)
  1. PREDNISOLONE [Suspect]
  2. AZATHIOPRINE [Suspect]
     Indication: RENAL TRANSPLANT
  3. CYCLOSPORINE [Suspect]
     Indication: RENAL TRANSPLANT
  4. MYCOPHENOLATE MOFETIL [Suspect]
     Indication: RENAL TRANSPLANT
  5. TACROLIMUS [Suspect]
     Indication: RENAL TRANSPLANT

REACTIONS (5)
  - BLADDER TRANSITIONAL CELL CARCINOMA [None]
  - GRAFT DYSFUNCTION [None]
  - HUMAN POLYOMAVIRUS INFECTION [None]
  - KIDNEY TRANSPLANT REJECTION [None]
  - POLYOMAVIRUS-ASSOCIATED NEPHROPATHY [None]
